FAERS Safety Report 11185938 (Version 2)
Quarter: 2015Q3

REPORT INFORMATION
  Report Type: Spontaneous
  Country: US (occurrence: US)
  Receive Date: 20150612
  Receipt Date: 20150717
  Transmission Date: 20151125
  Serious: No
  Sender: FDA-Public Use
  Company Number: US-ASTRAZENECA-2015SE54187

PATIENT
  Age: 594 Month
  Sex: Male
  Weight: 72.6 kg

DRUGS (9)
  1. SYMBICORT [Suspect]
     Active Substance: BUDESONIDE\FORMOTEROL FUMARATE DIHYDRATE
     Indication: DYSPNOEA
     Dosage: 160/4.5 MCG, 1 PUFF BID
     Route: 055
     Dates: start: 2015
  2. SYMBICORT [Suspect]
     Active Substance: BUDESONIDE\FORMOTEROL FUMARATE DIHYDRATE
     Indication: WHEEZING
     Dosage: 160 / 4.5 MCG 1 PUFF, BID, EVERY OTHER DAY
     Route: 055
     Dates: start: 20150525
  3. SYMBICORT [Suspect]
     Active Substance: BUDESONIDE\FORMOTEROL FUMARATE DIHYDRATE
     Indication: COUGH
     Dosage: 160 / 4.5 MCG 1 PUFF, BID, EVERY OTHER DAY
     Route: 055
     Dates: start: 20150525
  4. SYMBICORT [Suspect]
     Active Substance: BUDESONIDE\FORMOTEROL FUMARATE DIHYDRATE
     Indication: WHEEZING
     Dosage: 160/4.5 MCG, 1 PUFF BID
     Route: 055
     Dates: start: 2015
  5. SYMBICORT [Suspect]
     Active Substance: BUDESONIDE\FORMOTEROL FUMARATE DIHYDRATE
     Indication: WHEEZING
     Dosage: 80/ 4.5 MCG 1 PUFF, BID, EVERY OTHER DAY
     Route: 055
     Dates: start: 201409
  6. SYMBICORT [Suspect]
     Active Substance: BUDESONIDE\FORMOTEROL FUMARATE DIHYDRATE
     Indication: COUGH
     Dosage: 160/4.5 MCG, 1 PUFF BID
     Route: 055
     Dates: start: 2015
  7. SYMBICORT [Suspect]
     Active Substance: BUDESONIDE\FORMOTEROL FUMARATE DIHYDRATE
     Indication: COUGH
     Dosage: 80/ 4.5 MCG 1 PUFF, BID, EVERY OTHER DAY
     Route: 055
     Dates: start: 201409
  8. SYMBICORT [Suspect]
     Active Substance: BUDESONIDE\FORMOTEROL FUMARATE DIHYDRATE
     Indication: DYSPNOEA
     Dosage: 160 / 4.5 MCG 1 PUFF, BID, EVERY OTHER DAY
     Route: 055
     Dates: start: 20150525
  9. SYMBICORT [Suspect]
     Active Substance: BUDESONIDE\FORMOTEROL FUMARATE DIHYDRATE
     Indication: DYSPNOEA
     Dosage: 80/ 4.5 MCG 1 PUFF, BID, EVERY OTHER DAY
     Route: 055
     Dates: start: 201409

REACTIONS (7)
  - Product packaging quantity issue [Unknown]
  - Visual impairment [Not Recovered/Not Resolved]
  - Off label use [Unknown]
  - Off label use [Unknown]
  - Underdose [Unknown]
  - Hypersensitivity [Unknown]
  - Device malfunction [Unknown]

NARRATIVE: CASE EVENT DATE: 201409
